FAERS Safety Report 4471343-0 (Version None)
Quarter: 2004Q4

REPORT INFORMATION
  Report Type: 
  Country: None (occurrence: None)
  Receive Date: 20041006
  Receipt Date: 20040920
  Transmission Date: 20050328
  Serious: Yes (Death)
  Sender: FDA-Public Use
  Company Number: 2004JP001750

PATIENT
  Age: 33 Year
  Sex: Male

DRUGS (1)
  1. PROGRAF [Suspect]
     Indication: LIVER TRANSPLANT

REACTIONS (4)
  - HEPATITIS B VIRUS [None]
  - LIVER TRANSPLANT REJECTION [None]
  - PATHOGEN RESISTANCE [None]
  - VIRAL MUTATION IDENTIFIED [None]
